FAERS Safety Report 21689325 (Version 1)
Quarter: 2022Q4

REPORT INFORMATION
  Report Type: Spontaneous
  Country: US (occurrence: None)
  Receive Date: 20221206
  Receipt Date: 20221206
  Transmission Date: 20230113
  Serious: Yes (Hospitalization)
  Sender: FDA-Public Use
  Company Number: None

PATIENT
  Age: 61 Year
  Sex: Female

DRUGS (2)
  1. ARANESP [Suspect]
     Active Substance: DARBEPOETIN ALFA
     Indication: Anaemia
     Dosage: OTHER FREQUENCY : EVERY 4 WEEKS;?
     Route: 058
     Dates: start: 20201202
  2. ARANESP [Suspect]
     Active Substance: DARBEPOETIN ALFA
     Indication: Chronic kidney disease

REACTIONS (2)
  - Influenza [None]
  - Pneumonia [None]

NARRATIVE: CASE EVENT DATE: 20221117
